FAERS Safety Report 5146282-2 (Version None)
Quarter: 2006Q4

REPORT INFORMATION
  Report Type: 
  Country: None (occurrence: None)
  Receive Date: 20061102
  Receipt Date: 20061024
  Transmission Date: 20070319
  Serious: Yes (Hospitalization)
  Sender: FDA-Public Use
  Company Number: HQWYE586412SEP06

PATIENT
  Age: 80 Year
  Sex: Male

DRUGS (5)
  1. AMIODARONE HCL [Suspect]
     Indication: ATRIAL FIBRILLATION
     Dosage: 300 MG BOLUS AND THEN 200 MG DAILY INTRAVENOUS
     Route: 042
     Dates: start: 20060816, end: 20060818
  2. ZANTAC [Concomitant]
  3. MOLSIDOMINE (MOLSIDOMINE) [Concomitant]
  4. LANOXIN [Concomitant]
  5. DAFALGAN (PARACETAMOL) [Concomitant]

REACTIONS (6)
  - INJECTION SITE CELLULITIS [None]
  - INJECTION SITE ERYTHEMA [None]
  - INJECTION SITE REACTION [None]
  - INJECTION SITE THROMBOSIS [None]
  - INJECTION SITE WARMTH [None]
  - SKIN DISORDER [None]
